FAERS Safety Report 7407921-6 (Version None)
Quarter: 2011Q2

REPORT INFORMATION
  Report Type: 
  Country: None (occurrence: None)
  Receive Date: 20110406
  Receipt Date: 20110406
  Transmission Date: 20111010
  Serious: Yes (Other)
  Sender: FDA-Public Use
  Company Number: None

PATIENT
  Age: 27 Year
  Sex: Female
  Weight: 90.7194 kg

DRUGS (3)
  1. INVEGA [Suspect]
     Indication: IRRITABILITY
     Dosage: 3 MG  Q PM P.O.
     Route: 048
     Dates: start: 20110320, end: 20110324
  2. INVEGA [Suspect]
     Indication: BIPOLAR DISORDER
     Dosage: 3 MG  Q PM P.O.
     Route: 048
     Dates: start: 20110320, end: 20110324
  3. INVEGA [Suspect]
     Indication: AUTISM
     Dosage: 3 MG  Q PM P.O.
     Route: 048
     Dates: start: 20110320, end: 20110324

REACTIONS (2)
  - MANIA [None]
  - TREATMENT FAILURE [None]
